FAERS Safety Report 11584870 (Version 4)
Quarter: 2016Q3

REPORT INFORMATION
  Report Type: Report from Study
  Country: BR (occurrence: BR)
  Receive Date: 20151001
  Receipt Date: 20160906
  Transmission Date: 20161109
  Serious: Yes (Hospitalization, Other)
  Sender: FDA-Public Use
  Company Number: PHHY2015BR117120

PATIENT
  Age: 43 Year
  Sex: Male
  Weight: 65 kg

DRUGS (5)
  1. PURAN [Concomitant]
     Active Substance: LEVOTHYROXINE SODIUM
     Indication: PRODUCT USED FOR UNKNOWN INDICATION
     Route: 065
  2. OMEPRAZOLE. [Concomitant]
     Active Substance: OMEPRAZOLE
     Indication: PRODUCT USED FOR UNKNOWN INDICATION
     Route: 065
  3. EXJADE [Suspect]
     Active Substance: DEFERASIROX
     Indication: SICKLE CELL ANAEMIA
     Dosage: 4 DF OF 500 MF (30 MG/KG), QD
     Route: 048
     Dates: start: 2010
  4. ALLOPURINOL. [Concomitant]
     Active Substance: ALLOPURINOL
     Indication: BLOOD URIC ACID ABNORMAL
     Route: 065
  5. FOLIC ACID. [Concomitant]
     Active Substance: FOLIC ACID
     Indication: SICKLE CELL ANAEMIA
     Route: 065

REACTIONS (16)
  - Nausea [Recovered/Resolved]
  - Ulcer [Unknown]
  - Peripheral swelling [Unknown]
  - Weight decreased [Recovering/Resolving]
  - Pain [Unknown]
  - Seizure [Recovered/Resolved]
  - Thrombosis [Unknown]
  - Localised infection [Recovered/Resolved]
  - Pruritus [Unknown]
  - Limb injury [Unknown]
  - Cerebrovascular accident [Recovered/Resolved]
  - Abasia [Recovered/Resolved]
  - Learning disorder [Unknown]
  - Amnesia [Recovered/Resolved]
  - Stress [Recovered/Resolved]
  - Hypersensitivity [Unknown]

NARRATIVE: CASE EVENT DATE: 201207
